FAERS Safety Report 10528392 (Version 1)
Quarter: 2014Q4

REPORT INFORMATION
  Report Type: Spontaneous
  Country: US (occurrence: None)
  Receive Date: 20141017
  Receipt Date: 20141017
  Transmission Date: 20150528
  Serious: Yes (Disabling)
  Sender: FDA-Public Use
  Company Number: None

PATIENT
  Age: 21 Year
  Sex: Male
  Weight: 60 kg

DRUGS (1)
  1. PROPECIA [Suspect]
     Active Substance: FINASTERIDE
     Indication: ANDROGENETIC ALOPECIA
     Dosage: 1 PILL, TAKEN BY MOUTH
     Route: 048
     Dates: start: 20071101, end: 20101226

REACTIONS (4)
  - Libido decreased [None]
  - Erectile dysfunction [None]
  - Sperm concentration zero [None]
  - Alopecia [None]
